FAERS Safety Report 12932468 (Version 1)
Quarter: 2016Q4

REPORT INFORMATION
  Report Type: Report from Study
  Country: US (occurrence: US)
  Receive Date: 20161111
  Receipt Date: 20161111
  Transmission Date: 20170207
  Serious: Yes (Other)
  Sender: FDA-Public Use
  Company Number: US-AMGEN-USASL2016155466

PATIENT
  Age: 76 Year
  Sex: Female

DRUGS (2)
  1. NPLATE [Suspect]
     Active Substance: ROMIPLOSTIM
     Indication: IMMUNE THROMBOCYTOPENIC PURPURA
     Dosage: UNK, Q6WK
     Route: 065
  2. NPLATE [Suspect]
     Active Substance: ROMIPLOSTIM
     Dosage: 250 MCG, Q4WK
     Route: 065

REACTIONS (6)
  - Back pain [Unknown]
  - Asthma [Unknown]
  - Gait disturbance [Unknown]
  - Tremor [Unknown]
  - Musculoskeletal discomfort [Unknown]
  - Platelet count abnormal [Unknown]
